FAERS Safety Report 8541447-1 (Version None)
Quarter: 2012Q3

REPORT INFORMATION
  Report Type: 
  Country: None (occurrence: None)
  Receive Date: 20120716
  Receipt Date: 20120703
  Transmission Date: 20120928
  Serious: Yes (Death, Other)
  Sender: FDA-Public Use
  Company Number: 2012P1041503

PATIENT
  Age: 63 Year
  Sex: Male

DRUGS (4)
  1. CHEMOTHERAPY (NO PREF. NAME) [Suspect]
  2. FAMOTIDINE [Suspect]
  3. PREDNISOLONE [Suspect]
     Indication: POLYMYOSITIS
     Dosage: 10 MG, PO
     Route: 048
  4. ITRACONAZOLE [Suspect]
     Indication: BRONCHOPULMONARY ASPERGILLOSIS
     Dosage: 50;100 MG, QD, PO
     Route: 048

REACTIONS (10)
  - FALL [None]
  - IMMUNODEFICIENCY [None]
  - LUNG NEOPLASM MALIGNANT [None]
  - SKIN GRAFT [None]
  - PHAEHYPHOMYCOSIS [None]
  - CONDITION AGGRAVATED [None]
  - PURULENCE [None]
  - DRUG INEFFECTIVE [None]
  - LIMB INJURY [None]
  - DISEASE RECURRENCE [None]
